FAERS Safety Report 9953939 (Version 1)
Quarter: 2014Q1

REPORT INFORMATION
  Report Type: Spontaneous
  Country: FR (occurrence: FR)
  Receive Date: 20140304
  Receipt Date: 20140304
  Transmission Date: 20141002
  Serious: Yes (Hospitalization)
  Sender: FDA-Public Use
  Company Number: FR-PFIZER INC-2014056368

PATIENT
  Age: 63 Year
  Sex: Male

DRUGS (10)
  1. DALACINE [Suspect]
     Indication: ABSCESS LIMB
     Dosage: 2.4 G, 1X/DAY
     Route: 048
     Dates: start: 20131023, end: 20131119
  2. CEFEPIME MYLAN [Suspect]
     Indication: ABSCESS LIMB
     Dosage: 2 G, DAILY
     Dates: start: 20131023, end: 20131119
  3. CALCIPARIN [Suspect]
     Dosage: 0.5 MG, 3X/DAY
     Dates: start: 20131020, end: 20131119
  4. ALLOPURINOL SANDOZ [Suspect]
     Indication: GOUT
     Dosage: 300 MG, DAILY
     Route: 048
     Dates: end: 20131113
  5. ALLOPURINOL SANDOZ [Suspect]
     Dosage: 100 MG, DAILY
     Route: 048
     Dates: start: 20131114, end: 20131117
  6. PERINDOPRIL ARROW [Suspect]
     Indication: HYPERTENSION
     Dosage: 4 MG, DAILY
     Route: 048
     Dates: end: 20131113
  7. LASILIX [Concomitant]
     Dosage: 375 MG, DAILY
  8. TAHOR [Concomitant]
     Dosage: UNK
  9. LYRICA [Concomitant]
     Dosage: 150 MG, 2X/DAY
  10. OMEPRAZOLE [Concomitant]
     Dosage: UNK

REACTIONS (1)
  - Tubulointerstitial nephritis [Recovered/Resolved]
